FAERS Safety Report 8819985 (Version 1)
Quarter: 2012Q4

REPORT INFORMATION
  Report Type: 
  Country: GB (occurrence: GB)
  Receive Date: 20121001
  Receipt Date: 20121001
  Transmission Date: 20130627
  Serious: Yes (Other)
  Sender: FDA-Public Use
  Company Number: PHHY2012GB082996

PATIENT
  Sex: Male
  Weight: 188 kg

DRUGS (2)
  1. FLUOXETINE HYDROCHLORIDE [Suspect]
     Indication: ANXIETY
     Dosage: 20 mg, QD
     Route: 048
     Dates: start: 20120515
  2. FLUOXETINE HYDROCHLORIDE [Suspect]
     Indication: DEPRESSION

REACTIONS (3)
  - Temperature intolerance [Not Recovered/Not Resolved]
  - Muscle spasms [Not Recovered/Not Resolved]
  - Hyperhidrosis [Not Recovered/Not Resolved]
